FAERS Safety Report 14447114 (Version 1)
Quarter: 2018Q1

REPORT INFORMATION
  Report Type: Spontaneous
  Country: CN (occurrence: CN)
  Receive Date: 20180126
  Receipt Date: 20180126
  Transmission Date: 20180509
  Serious: Yes (Hospitalization, Other)
  Sender: FDA-Public Use
  Company Number: CN-ASTELLAS-2018US004783

PATIENT
  Age: 18 Year
  Sex: Male

DRUGS (1)
  1. TACROLIMUS. [Suspect]
     Active Substance: TACROLIMUS
     Indication: LIVER TRANSPLANT
     Dosage: UNK UNK, UNKNOWN FREQ. (TACROLIMUS BLOOD CONCENTRATION WAS 7.4NG/ML)
     Route: 065

REACTIONS (9)
  - Hepatic cirrhosis [Recovering/Resolving]
  - Biliary dilatation [Recovering/Resolving]
  - Bile duct stenosis [Recovering/Resolving]
  - Portal hypertension [Recovering/Resolving]
  - Splenomegaly [Recovering/Resolving]
  - Bile duct stone [Recovering/Resolving]
  - Intra-abdominal fluid collection [Recovering/Resolving]
  - Effusion [Recovering/Resolving]
  - Biliary fistula [Recovering/Resolving]

NARRATIVE: CASE EVENT DATE: 20161128
